FAERS Safety Report 22651837 (Version 1)
Quarter: 2023Q2

REPORT INFORMATION
  Report Type: Spontaneous
  Country: US (occurrence: US)
  Receive Date: 20230628
  Receipt Date: 20230628
  Transmission Date: 20230721
  Serious: No
  Sender: FDA-Public Use
  Company Number: US-CTI BIOPHARMA-2023US03661

PATIENT

DRUGS (11)
  1. VONJO [Suspect]
     Active Substance: PACRITINIB
     Indication: Polycythaemia vera
     Dosage: 200 MG, BID
     Route: 048
     Dates: start: 20230302
  2. ALLOPURINOL [Concomitant]
     Active Substance: ALLOPURINOL
  3. ELIQUIS [Concomitant]
     Active Substance: APIXABAN
  4. ENTRESTO [Concomitant]
     Active Substance: SACUBITRIL\VALSARTAN
  5. HYDROXYZINE [Concomitant]
     Active Substance: HYDROXYZINE HYDROCHLORIDE
  6. METOPROLOL SUCCINATE [Concomitant]
     Active Substance: METOPROLOL SUCCINATE
  7. RANEXA [Concomitant]
     Active Substance: RANOLAZINE
  8. CALCIUM [Concomitant]
     Active Substance: CALCIUM
  9. FERROUS SULFATE [Concomitant]
     Active Substance: FERROUS SULFATE
  10. VITAMIN B12 [Concomitant]
     Active Substance: CYANOCOBALAMIN
  11. ASPIRIN [Concomitant]
     Active Substance: ASPIRIN

REACTIONS (5)
  - Fatigue [Unknown]
  - Product dose omission issue [Unknown]
  - Feeling abnormal [Recovered/Resolved]
  - Diarrhoea [Unknown]
  - Dizziness [Unknown]
